FAERS Safety Report 5818532-8 (Version None)
Quarter: 2008Q3

REPORT INFORMATION
  Report Type: 
  Country: None (occurrence: None)
  Receive Date: 20080717
  Receipt Date: 20080707
  Transmission Date: 20090109
  Serious: Yes (Other)
  Sender: FDA-Public Use
  Company Number: 2008SP005292

PATIENT
  Age: 64 Year
  Sex: Female
  Weight: 72.5755 kg

DRUGS (12)
  1. MIRALAX [Suspect]
     Indication: CONSTIPATION
     Dosage: 17 GM; ONCE; PO
     Route: 048
     Dates: start: 20080311, end: 20080311
  2. MIRALAX [Suspect]
     Indication: CONSTIPATION
     Dosage: 17 GM; ONCE; PO
     Route: 048
  3. CARDIZEM LA (CON.) [Concomitant]
  4. LISINOPRIL (CON.) [Concomitant]
  5. PREDNISONE (CON.) [Concomitant]
  6. SYNTHROID (CON.) [Concomitant]
  7. INDERAL (CON.) [Concomitant]
  8. ESTRADIOL (CON.) [Concomitant]
  9. CYMBALTA (CON.) [Concomitant]
  10. LOVASTATIN (CON.) [Concomitant]
  11. PERCOCET (CON.) [Concomitant]
  12. CLONAZEPAM (CON.) [Concomitant]

REACTIONS (12)
  - BLOOD PRESSURE INCREASED [None]
  - DRUG HYPERSENSITIVITY [None]
  - FACIAL PAIN [None]
  - HEART RATE DECREASED [None]
  - NASAL CONGESTION [None]
  - PHARYNGEAL OEDEMA [None]
  - RESPIRATORY RATE INCREASED [None]
  - RHINITIS ALLERGIC [None]
  - SINUS DISORDER [None]
  - SINUSITIS [None]
  - SPEECH DISORDER [None]
  - SWOLLEN TONGUE [None]
